FAERS Safety Report 9460047 (Version 1)
Quarter: 2013Q3

REPORT INFORMATION
  Report Type: Spontaneous
  Country: US (occurrence: None)
  Receive Date: 20130814
  Receipt Date: 20130814
  Transmission Date: 20140515
  Serious: Yes (Other)
  Sender: FDA-Public Use
  Company Number: None

PATIENT
  Age: 9 Year
  Sex: Male

DRUGS (2)
  1. MONTELUKAST [Suspect]
     Indication: ASTHMA
     Dosage: 5 MG  ONCE AT BEDTIME
     Dates: start: 201209
  2. MONTELUKAST [Suspect]
     Indication: MULTIPLE ALLERGIES
     Dosage: 5 MG  ONCE AT BEDTIME
     Dates: start: 201209

REACTIONS (4)
  - Anxiety [None]
  - Sleep terror [None]
  - Initial insomnia [None]
  - Product substitution issue [None]
